FAERS Safety Report 5140714-1 (Version None)
Quarter: 2006Q4

REPORT INFORMATION
  Report Type: 
  Country: None (occurrence: None)
  Receive Date: 20061025
  Receipt Date: 20061016
  Transmission Date: 20070319
  Serious: No
  Sender: FDA-Public Use
  Company Number: 2006-149072-NL

PATIENT
  Sex: Female

DRUGS (1)
  1. ETONOGESTREL [Suspect]

REACTIONS (3)
  - DEVICE MIGRATION [None]
  - DRUG LEVEL INCREASED [None]
  - EPILEPSY [None]
